FAERS Safety Report 5991070-8 (Version None)
Quarter: 2008Q4

REPORT INFORMATION
  Report Type: 
  Country: None (occurrence: None)
  Receive Date: 20081202
  Receipt Date: 20071121
  Transmission Date: 20090506
  Serious: Yes (Other)
  Sender: FDA-Public Use
  Company Number: WAES 0705USA00815

PATIENT
  Age: 68 Year
  Sex: Female
  Weight: 64.4108 kg

DRUGS (17)
  1. FOSAMAX [Suspect]
     Indication: OSTEOPENIA
     Dosage: 40 MG/WKY/PO; 70 MG/WKY/PO
     Route: 048
     Dates: end: 20070312
  2. FOSAMAX [Suspect]
     Indication: OSTEOPOROSIS
     Dosage: 40 MG/WKY/PO; 70 MG/WKY/PO
     Route: 048
     Dates: end: 20070312
  3. FOSAMAX [Suspect]
     Indication: OSTEOPENIA
     Dosage: 40 MG/WKY/PO; 70 MG/WKY/PO
     Route: 048
     Dates: start: 20000821
  4. FOSAMAX [Suspect]
     Indication: OSTEOPOROSIS
     Dosage: 40 MG/WKY/PO; 70 MG/WKY/PO
     Route: 048
     Dates: start: 20000821
  5. FOSAMAX PLUS D [Suspect]
     Indication: OSTEOPENIA
     Dosage: 70 MG/2800 IU/WKY/PO
     Route: 048
     Dates: start: 20070312
  6. FOSAMAX PLUS D [Suspect]
     Indication: OSTEOPOROSIS
     Dosage: 70 MG/2800 IU/WKY/PO
     Route: 048
     Dates: start: 20070312
  7. CENTRUM SILVER [Concomitant]
  8. EVISTA [Concomitant]
  9. . [Concomitant]
  10. KLONOPIN [Concomitant]
  11. POSTURE D [Concomitant]
  12. ZANTAC [Concomitant]
  13. ZOCOR [Concomitant]
  14. BISACODYL [Concomitant]
  15. CLONAZEPAM [Concomitant]
  16. GASTROINTESTINAL PREPARATIONS (U [Concomitant]
  17. TRIAMCINOLONE ACTONIDE [Concomitant]

REACTIONS (3)
  - BLOOD CHOLESTEROL INCREASED [None]
  - OSTEONECROSIS [None]
  - PARATHYROID TUMOUR BENIGN [None]
